FAERS Safety Report 8442163-7 (Version None)
Quarter: 2012Q2

REPORT INFORMATION
  Report Type: 
  Country: None (occurrence: None)
  Receive Date: 20120615
  Receipt Date: 20120216
  Transmission Date: 20120825
  Serious: No
  Sender: FDA-Public Use
  Company Number: US-NOVEN-12US004113

PATIENT
  Age: 8 Year
  Sex: Female

DRUGS (2)
  1. COUGH SYRUP [Concomitant]
  2. DAYTRANA [Suspect]
     Indication: ATTENTION DEFICIT/HYPERACTIVITY DISORDER
     Dosage: 10 MG, QD
     Route: 062
     Dates: start: 20120101, end: 20120101

REACTIONS (1)
  - CHEST PAIN [None]
